FAERS Safety Report 17843251 (Version 1)
Quarter: 2020Q2

REPORT INFORMATION
  Report Type: Spontaneous
  Country: US (occurrence: US)
  Receive Date: 20200530
  Receipt Date: 20200530
  Transmission Date: 20200714
  Serious: Yes (Life-Threatening, Hospitalization, Other)
  Sender: FDA-Public Use
  Company Number: US-DRREDDYS-USA/USA/20/0123500

PATIENT
  Age: 51 Year
  Sex: Female

DRUGS (26)
  1. OLANZAPINE TABLETS 2.5 MG, 5 MG, 7.5 MG, 10 MG [Suspect]
     Active Substance: OLANZAPINE
     Indication: BIPOLAR DISORDER
     Dosage: ON DAY 1 AS AN WHEN NECESSARY (PRN)
     Route: 030
  2. LORAZEPAM INJECTION USP, 2 MG/ML AND 4 MG/ML [Suspect]
     Active Substance: LORAZEPAM
     Dosage: ORAL / INTRAMUSCULAR ON DAY 4
     Route: 030
  3. LORAZEPAM INJECTION USP, 2 MG/ML AND 4 MG/ML [Suspect]
     Active Substance: LORAZEPAM
     Dosage: TWO ROUNDS ON DAY 2 AND DAY 3
     Route: 030
  4. CHLORPROMAZINE. [Interacting]
     Active Substance: CHLORPROMAZINE
     Dosage: ORAL / INTRAMUSCULAR ON DAY 3
  5. CHLORPROMAZINE. [Interacting]
     Active Substance: CHLORPROMAZINE
     Dosage: ON DAY 4
     Route: 030
  6. LORAZEPAM INJECTION USP, 2 MG/ML AND 4 MG/ML [Suspect]
     Active Substance: LORAZEPAM
     Indication: PRODUCT USED FOR UNKNOWN INDICATION
     Dosage: ON DAY 4
     Route: 030
  7. LORAZEPAM INJECTION USP, 2 MG/ML AND 4 MG/ML [Suspect]
     Active Substance: LORAZEPAM
     Dosage: ORAL / INTRAMUSCULAR ON DAY 3
     Route: 030
  8. CHLORPROMAZINE. [Interacting]
     Active Substance: CHLORPROMAZINE
     Indication: AGITATION
     Dosage: ON DAY 4 THE DOSE WAS AGAIN CHANGED TO 100 MG PO/IM
     Route: 030
  9. CHLORPROMAZINE. [Interacting]
     Active Substance: CHLORPROMAZINE
     Dosage: ON DAY 4 THE DOSE WAS CHANGED TO PO 200 MG Q8H.
  10. CLONAZEPAM. [Suspect]
     Active Substance: CLONAZEPAM
     Indication: BIPOLAR DISORDER
     Dosage: AT DAY 1
     Route: 048
  11. CLONAZEPAM. [Suspect]
     Active Substance: CLONAZEPAM
     Dosage: ON DAY 2 DOSE INCREASED TO 1 MG PO
     Route: 048
  12. LORAZEPAM INJECTION USP, 2 MG/ML AND 4 MG/ML [Suspect]
     Active Substance: LORAZEPAM
     Dosage: ORAL / INTRAMUSCULAR ON DAY 3
     Route: 030
  13. HALOPERIDOL. [Suspect]
     Active Substance: HALOPERIDOL
     Indication: BIPOLAR DISORDER
     Dosage: TWO ROUNDS ON DAY 2 AND DAY 3
  14. OLANZAPINE TABLETS 2.5 MG, 5 MG, 7.5 MG, 10 MG [Suspect]
     Active Substance: OLANZAPINE
     Dosage: ON DAY 2 TWO ROUNDS
     Route: 048
  15. OLANZAPINE TABLETS 2.5 MG, 5 MG, 7.5 MG, 10 MG [Suspect]
     Active Substance: OLANZAPINE
     Dosage: ON DAY 2 DOSE WAS INCREASED
     Route: 048
  16. CHLORPROMAZINE. [Interacting]
     Active Substance: CHLORPROMAZINE
     Dosage: ORAL / INTRAMUSCULAR ON DAY 3
     Route: 030
  17. CHLORPROMAZINE. [Interacting]
     Active Substance: CHLORPROMAZINE
     Dosage: TWO ROUNDS ON DAY 2
     Route: 030
  18. OSELTAMIVIR [Concomitant]
     Active Substance: OSELTAMIVIR
     Indication: INFLUENZA
  19. CHLORPROMAZINE. [Interacting]
     Active Substance: CHLORPROMAZINE
     Dosage: ON DAY 4 THE DOSE WAS AGAIN CHANGED TO 100 MG PO/IM
  20. OLANZAPINE TABLETS 2.5 MG, 5 MG, 7.5 MG, 10 MG [Suspect]
     Active Substance: OLANZAPINE
     Dosage: ON DAY 1
  21. LORAZEPAM INJECTION USP, 2 MG/ML AND 4 MG/ML [Suspect]
     Active Substance: LORAZEPAM
     Dosage: ON DAY 4 THE DOSE WAS CHANGED TO Q8H
  22. LORAZEPAM INJECTION USP, 2 MG/ML AND 4 MG/ML [Suspect]
     Active Substance: LORAZEPAM
     Dosage: ORAL / INTRAMUSCULAR ON DAY 4
     Route: 030
  23. DIPHENHYDRAMINE HYDROCHLORIDE. [Suspect]
     Active Substance: DIPHENHYDRAMINE HYDROCHLORIDE
     Indication: BIPOLAR DISORDER
     Dosage: TWO ROUNDS ON DAY 2 AND DAY 3
     Route: 030
  24. ZYPREXA [Suspect]
     Active Substance: OLANZAPINE
     Indication: BIPOLAR DISORDER
     Dosage: AS NECESSARY AT DAY 4
  25. VALPROIC ACID. [Interacting]
     Active Substance: VALPROIC ACID
     Indication: MOOD SWINGS
     Dosage: EVERY NIGHT AT BEDTIME (QHS)
     Route: 048
  26. VALPROIC ACID. [Interacting]
     Active Substance: VALPROIC ACID
     Dosage: EVERY MORNING (QAM)
     Route: 048

REACTIONS (10)
  - Hypercapnia [Recovered/Resolved]
  - Dysarthria [Unknown]
  - Drug interaction [Unknown]
  - Chronic obstructive pulmonary disease [Recovered/Resolved]
  - Respiratory distress [Recovered/Resolved]
  - Deep vein thrombosis [Recovered/Resolved]
  - Pneumonia [Unknown]
  - Somnolence [Unknown]
  - Respiratory failure [Recovered/Resolved]
  - Pulmonary embolism [Recovered/Resolved]
